FAERS Safety Report 4497411-5 (Version None)
Quarter: 2004Q4

REPORT INFORMATION
  Report Type: 
  Country: None (occurrence: None)
  Receive Date: 20041104
  Receipt Date: 20041025
  Transmission Date: 20050328
  Serious: Yes (Other)
  Sender: FDA-Public Use
  Company Number: 2004047157

PATIENT
  Age: 14 Year
  Sex: Male
  Weight: 40.8237 kg

DRUGS (2)
  1. NEURONTIN [Suspect]
     Indication: CEREBRAL PALSY
     Dosage: 600 MG (200 MG, 3 IN 1 D), ORAL
     Route: 048
  2. NEURONTIN [Suspect]
     Indication: MUSCLE SPASTICITY
     Dosage: 600 MG (200 MG, 3 IN 1 D), ORAL
     Route: 048

REACTIONS (5)
  - DRUG EFFECT DECREASED [None]
  - EMOTIONAL DISORDER [None]
  - GROWTH ACCELERATED [None]
  - MEDICATION ERROR [None]
  - PHARMACEUTICAL PRODUCT COMPLAINT [None]
